FAERS Safety Report 9759510 (Version 1)
Quarter: 2013Q4

REPORT INFORMATION
  Report Type: Spontaneous
  Country: JP (occurrence: JP)
  Receive Date: 20131216
  Receipt Date: 20131216
  Transmission Date: 20140711
  Serious: Yes (Hospitalization)
  Sender: FDA-Public Use
  Company Number: JP-NOVOPROD-395206

PATIENT
  Age: 28 Year
  Sex: Female

DRUGS (4)
  1. LEVEMIR CHU FLEXPEN [Suspect]
     Indication: TYPE 1 DIABETES MELLITUS
     Dosage: UNKNOWN
     Route: 065
  2. LEVEMIR CHU FLEXPEN [Suspect]
     Indication: DIABETIC KETOACIDOSIS
  3. HUMALOG [Suspect]
     Indication: TYPE 1 DIABETES MELLITUS
     Dosage: UNKNOWN
     Route: 058
  4. HUMALOG [Suspect]
     Indication: DIABETIC KETOACIDOSIS

REACTIONS (2)
  - Hypokalaemia [Recovered/Resolved]
  - Condition aggravated [Recovered/Resolved]
